FAERS Safety Report 20429569 (Version 1)
Quarter: 2022Q1

REPORT INFORMATION
  Report Type: Report from Study
  Country: FR (occurrence: FR)
  Receive Date: 20220204
  Receipt Date: 20220204
  Transmission Date: 20220423
  Serious: Yes (Other)
  Sender: FDA-Public Use
  Company Number: FR-SERVIER-S19006256

PATIENT

DRUGS (7)
  1. ONCASPAR [Suspect]
     Active Substance: PEGASPARGASE
     Indication: Acute lymphocytic leukaemia
     Dosage: 3800 IU ON D12 OF EACH CYCLE
     Route: 042
     Dates: start: 20190327, end: 20190327
  2. PREDNISOLONE [Suspect]
     Active Substance: PREDNISOLONE
     Indication: Acute lymphocytic leukaemia
     Dosage: 90 MG ON D8 TO D28 OF EACH CYCLE
     Route: 042
     Dates: start: 20190322, end: 20190411
  3. VINCRISTINE [Suspect]
     Active Substance: VINCRISTINE
     Indication: Acute lymphocytic leukaemia
     Dosage: 2 MG ON D8, 15, 22 AND 29 OF EACH CYCLE
     Route: 042
     Dates: start: 20190322, end: 20190412
  4. DAUNORUBICIN [Suspect]
     Active Substance: DAUNORUBICIN
     Indication: Acute lymphocytic leukaemia
     Dosage: 45 MG ON D9, 15, 22 AND 29 OF EACH CYCLE
     Route: 042
     Dates: start: 20190323, end: 20190422
  5. METHOTREXATE [Suspect]
     Active Substance: METHOTREXATE
     Indication: Acute lymphocytic leukaemia
     Dosage: 15 MG ON D18 AND 25 OF EACH CYCLE
     Route: 037
     Dates: start: 20190401, end: 20190408
  6. CYTARABINE [Suspect]
     Active Substance: CYTARABINE
     Indication: Acute lymphocytic leukaemia
     Dosage: 30 MG ON D18 AND 25 OF EACH CYCLE
     Route: 037
     Dates: start: 20190401, end: 20190408
  7. HYDROCORTISONE [Suspect]
     Active Substance: HYDROCORTISONE
     Indication: Acute lymphocytic leukaemia
     Dosage: 15 MG ON D18 AND 25 OF EACH CYCLE
     Route: 037
     Dates: start: 20190401, end: 20190408

REACTIONS (2)
  - Glycosuria [Recovered/Resolved]
  - Hyperglycaemia [Recovered/Resolved]

NARRATIVE: CASE EVENT DATE: 20190329
